FAERS Safety Report 17206398 (Version 1)
Quarter: 2020Q1

REPORT INFORMATION
  Report Type: Spontaneous
  Country: US (occurrence: US)
  Receive Date: 20191226
  Receipt Date: 20191226
  Transmission Date: 20200409
  Serious: Yes (Death)
  Sender: FDA-Public Use
  Company Number: None

PATIENT
  Age: 25 Year
  Sex: Female
  Weight: 56.25 kg

DRUGS (1)
  1. AMNESTEEM [Suspect]
     Active Substance: ISOTRETINOIN
     Indication: ACNE
     Dosage: ?          QUANTITY:60 CAPSULE(S);?
     Route: 048
     Dates: start: 20190206, end: 20190806

REACTIONS (8)
  - Anxiety [None]
  - Pruritus [None]
  - Dry mouth [None]
  - Irritability [None]
  - Completed suicide [None]
  - Formication [None]
  - Nervousness [None]
  - Depression [None]

NARRATIVE: CASE EVENT DATE: 20191119
